FAERS Safety Report 7238875-3 (Version None)
Quarter: 2011Q1

REPORT INFORMATION
  Report Type: 
  Country: None (occurrence: None)
  Receive Date: 20110121
  Receipt Date: 20110113
  Transmission Date: 20110831
  Serious: Yes (Other)
  Sender: FDA-Public Use
  Company Number: PHHY2011ES02576

PATIENT
  Age: 44 Year

DRUGS (3)
  1. GLEEVEC [Suspect]
     Indication: ACUTE LYMPHOCYTIC LEUKAEMIA
     Dosage: 600 MG, DAILY
     Route: 048
     Dates: start: 20100801
  2. MERCAPTOPURINE [Concomitant]
     Dosage: 40 MG/M2, DAILY
     Route: 048
  3. METHOTREXATE [Concomitant]
     Dosage: 15 MG/M2, QW

REACTIONS (3)
  - TOXICITY TO VARIOUS AGENTS [None]
  - BONE MARROW FAILURE [None]
  - PANCYTOPENIA [None]
